FAERS Safety Report 4632770-1 (Version None)
Quarter: 2005Q2

REPORT INFORMATION
  Report Type: 
  Country: None (occurrence: None)
  Receive Date: 20050408
  Receipt Date: 20050408
  Transmission Date: 20051028
  Serious: Yes (Life-Threatening)
  Sender: FDA-Public Use
  Company Number: None

PATIENT
  Sex: Male
  Weight: 89 kg

DRUGS (16)
  1. SUCCINYLCHOLINE [Suspect]
     Indication: INTUBATION
     Dosage: 100 MG 1 TIME DOSE INTRAVENOUS
     Route: 042
     Dates: start: 20050406, end: 20050406
  2. ERYTHOMYCIN ETHYL SUCCINATE [Concomitant]
  3. FERROUS SULFATE TAB [Concomitant]
  4. ALBUMIN (HUMAN) [Concomitant]
  5. METOPROLOL TARTRATE [Concomitant]
  6. AMLODIPINE [Concomitant]
  7. RANITIDINE [Concomitant]
  8. CHLOROHEXIDINE [Concomitant]
  9. POTASSIUM CHLORIDE [Concomitant]
  10. METOCLOPRAMIDE [Concomitant]
  11. ITRACONAZOLE [Concomitant]
  12. BUMETANIDE [Concomitant]
  13. COMBIVENT [Concomitant]
  14. INSULIN [Concomitant]
  15. LORAZEPAM [Concomitant]
  16. MORPHINE [Concomitant]

REACTIONS (6)
  - BRADYCARDIA [None]
  - CARDIAC ARREST [None]
  - ELECTROCARDIOGRAM QRS COMPLEX PROLONGED [None]
  - HYPERKALAEMIA [None]
  - HYPERTENSION [None]
  - SINUS TACHYCARDIA [None]
